FAERS Safety Report 6191306-7 (Version None)
Quarter: 2009Q2

REPORT INFORMATION
  Report Type: 
  Country: None (occurrence: None)
  Receive Date: 20090515
  Receipt Date: 20090430
  Transmission Date: 20091009
  Serious: Yes (Hospitalization)
  Sender: FDA-Public Use
  Company Number: BR-ROCHE-630859

PATIENT
  Age: 54 Year
  Sex: Male

DRUGS (5)
  1. FUZEON [Suspect]
     Route: 065
  2. LAMIVUDINE [Concomitant]
  3. RITONAVIR [Concomitant]
  4. MARAVIROC [Concomitant]
  5. DARUNAVIR [Concomitant]

REACTIONS (2)
  - HEPATITIS [None]
  - PORPHYRIA [None]
